FAERS Safety Report 7553538-2 (Version None)
Quarter: 2011Q2

REPORT INFORMATION
  Report Type: 
  Country: None (occurrence: None)
  Receive Date: 20110617
  Receipt Date: 20110524
  Transmission Date: 20111010
  Serious: Yes (Hospitalization, Other)
  Sender: FDA-Public Use
  Company Number: US-BAYER-2011-028215

PATIENT
  Age: 23 Year
  Sex: Female

DRUGS (6)
  1. SYNTHROID [Concomitant]
     Indication: BLOOD THYROID STIMULATING HORMONE INCREASED
     Dosage: 125 ?G, QD
  2. SYNTHROID [Concomitant]
     Indication: THYROID NEOPLASM
  3. YAZ [Suspect]
     Indication: ACNE
  4. LEVOTHYROXINE SODIUM [Concomitant]
     Dosage: 75 ?G, UNK
  5. LESSINA [Concomitant]
     Dosage: UNK
     Dates: end: 20100901
  6. YAZ [Suspect]
     Indication: PREMENSTRUAL SYNDROME

REACTIONS (5)
  - RENAL IMPAIRMENT [None]
  - PULMONARY EMBOLISM [None]
  - WEIGHT INCREASED [None]
  - HYPOTHYROIDISM [None]
  - INJURY [None]
